FAERS Safety Report 6896852-6 (Version None)
Quarter: 2010Q3

REPORT INFORMATION
  Report Type: 
  Country: None (occurrence: None)
  Receive Date: 20100802
  Receipt Date: 20070220
  Transmission Date: 20110219
  Serious: No
  Sender: FDA-Public Use
  Company Number: US-PFIZER INC-2007012517

PATIENT
  Sex: Female
  Weight: 111.1 kg

DRUGS (8)
  1. LYRICA [Suspect]
     Indication: ARTHRITIS
     Dates: start: 20070203
  2. LYRICA [Suspect]
     Indication: SCIATICA
  3. SYNTHROID [Concomitant]
     Indication: HYPOTHYROIDISM
  4. WARFARIN SODIUM [Concomitant]
  5. PRILOSEC [Concomitant]
     Indication: GASTROOESOPHAGEAL REFLUX DISEASE
     Dates: start: 20061101
  6. ALBUTEROL [Concomitant]
  7. CAPTOPRIL [Concomitant]
     Indication: BLOOD PRESSURE
     Dates: start: 20061201
  8. CARBACHOL [Concomitant]

REACTIONS (6)
  - CONFUSIONAL STATE [None]
  - COORDINATION ABNORMAL [None]
  - DRUG EFFECT DECREASED [None]
  - FATIGUE [None]
  - PAIN [None]
  - SOMNOLENCE [None]
